FAERS Safety Report 9154599 (Version 1)
Quarter: 2013Q1

REPORT INFORMATION
  Report Type: Spontaneous
  Country: US (occurrence: None)
  Receive Date: 20130206
  Receipt Date: 20130206
  Transmission Date: 20140127
  Serious: Yes (Hospitalization)
  Sender: FDA-Public Use
  Company Number: IMP_06155_2013

PATIENT
  Age: 53 Year
  Sex: Female

DRUGS (8)
  1. DIGOXIN [Suspect]
     Dosage: ([NOT THE PRESCRIBED AMOUNT] [60 TABLETS; 15MG])
  2. NIFEDIPINE [Concomitant]
  3. PROPAFENONE [Concomitant]
  4. BENZYLHYDROCHLORTHIAZIDE [Concomitant]
  5. ROSUVASTATIN [Concomitant]
  6. PHENYTOIN [Concomitant]
  7. ALBUTEROL /00139501/ [Concomitant]
  8. ALCOHOL [Concomitant]

REACTIONS (23)
  - Chest discomfort [None]
  - Dyspnoea [None]
  - Abdominal pain [None]
  - Nausea [None]
  - Vomiting [None]
  - Somnolence [None]
  - Heart rate decreased [None]
  - Cardiac murmur [None]
  - Mental status changes [None]
  - Electrocardiogram ST segment depression [None]
  - Nodal rhythm [None]
  - Tricuspid valve incompetence [None]
  - Mitral valve incompetence [None]
  - Blood alcohol increased [None]
  - Drug screen positive [None]
  - Respiratory acidosis [None]
  - Overdose [None]
  - Supraventricular extrasystoles [None]
  - Atrial tachycardia [None]
  - Ventricular tachycardia [None]
  - Ventricular fibrillation [None]
  - Toxicity to various agents [None]
  - Atrioventricular block first degree [None]
